FAERS Safety Report 11209548 (Version 2)
Quarter: 2015Q3

REPORT INFORMATION
  Report Type: Report from Study
  Country: JP (occurrence: JP)
  Receive Date: 20150622
  Receipt Date: 20150731
  Transmission Date: 20151125
  Serious: Yes (Death)
  Sender: FDA-Public Use
  Company Number: JP-EISAI MEDICAL RESEARCH-EC-2015-007877

PATIENT
  Age: 79 Year
  Sex: Female

DRUGS (12)
  1. LYRICA [Concomitant]
     Active Substance: PREGABALIN
  2. EDIROL [Concomitant]
     Active Substance: ELDECALCITOL
  3. NEXIUM [Concomitant]
     Active Substance: ESOMEPRAZOLE MAGNESIUM
  4. DEPAS [Concomitant]
     Active Substance: ETIZOLAM
  5. ARICEPT [Suspect]
     Active Substance: DONEPEZIL HYDROCHLORIDE
     Route: 048
     Dates: start: 20140513, end: 20150324
  6. MEXITIL [Concomitant]
     Active Substance: MEXILETINE HYDROCHLORIDE
  7. SEROQUEL [Concomitant]
     Active Substance: QUETIAPINE FUMARATE
  8. THYRADIN S [Concomitant]
     Active Substance: LEVOTHYROXINE SODIUM
  9. LENDORMIN [Concomitant]
     Active Substance: BROTIZOLAM
  10. MEMARY [Suspect]
     Active Substance: MEMANTINE HYDROCHLORIDE
     Indication: DEMENTIA ALZHEIMER^S TYPE
     Route: 048
     Dates: start: 20140429, end: 20150324
  11. ARICEPT [Suspect]
     Active Substance: DONEPEZIL HYDROCHLORIDE
     Indication: DEMENTIA ALZHEIMER^S TYPE
     Route: 048
     Dates: start: 20140429, end: 20140512
  12. CELECOX [Concomitant]
     Active Substance: CELECOXIB

REACTIONS (2)
  - Circulatory collapse [Fatal]
  - Renal failure [Fatal]

NARRATIVE: CASE EVENT DATE: 20150324
